FAERS Safety Report 18130133 (Version 1)
Quarter: 2020Q3

REPORT INFORMATION
  Report Type: Spontaneous
  Country: US (occurrence: US)
  Receive Date: 20200810
  Receipt Date: 20200810
  Transmission Date: 20201103
  Serious: Yes (Death)
  Sender: FDA-Public Use
  Company Number: None

PATIENT
  Age: 72 Year
  Sex: Female
  Weight: 82.4 kg

DRUGS (10)
  1. INSULIN LISPRO [Concomitant]
     Active Substance: INSULIN LISPRO
     Dates: start: 20200804, end: 20200809
  2. FUROSEMIDE. [Concomitant]
     Active Substance: FUROSEMIDE
     Dates: start: 20200804, end: 20200809
  3. ZINC GLUCONATE [Concomitant]
     Active Substance: ZINC GLUCONATE
     Dates: start: 20200806, end: 20200809
  4. REMDESIVIR. [Suspect]
     Active Substance: REMDESIVIR
     Indication: COVID-19
     Route: 042
     Dates: start: 20200804, end: 20200809
  5. COLCHICINE. [Concomitant]
     Active Substance: COLCHICINE
     Dates: start: 20200806, end: 20200809
  6. VITAMIN C [Concomitant]
     Active Substance: ASCORBIC ACID
     Dates: start: 20200806, end: 20200809
  7. INSULIN REGULAR [Concomitant]
     Active Substance: INSULIN NOS
     Dates: start: 20200807, end: 20200809
  8. SERTRALINE [Concomitant]
     Active Substance: SERTRALINE HYDROCHLORIDE
     Dates: start: 20200803, end: 20200809
  9. PANTOPRAZOLE [Concomitant]
     Active Substance: PANTOPRAZOLE
     Dates: start: 20200805, end: 20200809
  10. LORAZEPAM. [Concomitant]
     Active Substance: LORAZEPAM
     Dates: start: 20200808, end: 20200809

REACTIONS (1)
  - Respiratory failure [None]

NARRATIVE: CASE EVENT DATE: 20200809
